FAERS Safety Report 15756938 (Version 1)
Quarter: 2018Q4

REPORT INFORMATION
  Report Type: Spontaneous
  Country: US (occurrence: US)
  Receive Date: 20181223
  Receipt Date: 20181223
  Transmission Date: 20190205
  Serious: Yes (Other)
  Sender: FDA-Public Use
  Company Number: None

PATIENT
  Age: 51 Year
  Sex: Female
  Weight: 54 kg

DRUGS (4)
  1. MORPHINE SULFATE. [Concomitant]
     Active Substance: MORPHINE SULFATE
  2. OXYCODONE AND ACETAMINOPHEN [Suspect]
     Active Substance: ACETAMINOPHEN\OXYCODONE HYDROCHLORIDE
     Indication: PAIN
     Dosage: ?          QUANTITY:120 TABLET(S);?
     Route: 048
     Dates: start: 20181030, end: 20181130
  3. MULTI VITAMIN [Concomitant]
     Active Substance: VITAMINS
  4. OXYCODONE AND ACETAMINOPHEN [Suspect]
     Active Substance: ACETAMINOPHEN\OXYCODONE HYDROCHLORIDE
     Indication: SPINAL FRACTURE
     Dosage: ?          QUANTITY:120 TABLET(S);?
     Route: 048
     Dates: start: 20181030, end: 20181130

REACTIONS (7)
  - Abdominal pain upper [None]
  - Dizziness [None]
  - Drug ineffective [None]
  - Product substitution issue [None]
  - Nausea [None]
  - Gastrooesophageal reflux disease [None]
  - Headache [None]

NARRATIVE: CASE EVENT DATE: 20181129
